FAERS Safety Report 6935723-3 (Version None)
Quarter: 2010Q3

REPORT INFORMATION
  Report Type: 
  Country: None (occurrence: None)
  Receive Date: 20100823
  Receipt Date: 20100807
  Transmission Date: 20110219
  Serious: Yes (Hospitalization)
  Sender: FDA-Public Use
  Company Number: TR-US-EMD SERONO, INC.-7013300

PATIENT
  Age: 40 Year
  Sex: Female

DRUGS (3)
  1. REBIF [Suspect]
     Indication: MULTIPLE SCLEROSIS
     Dates: start: 20100803, end: 20100803
  2. REBIF [Suspect]
     Dates: start: 20100806
  3. MINOSET PLUS [Suspect]

REACTIONS (2)
  - HYPERSENSITIVITY [None]
  - NAUSEA [None]
